FAERS Safety Report 8304599 (Version 4)
Quarter: 2013Q2

REPORT INFORMATION
  Report Type: Spontaneous
  Country: DK (occurrence: DK)
  Receive Date: 20111221
  Receipt Date: 20130626
  Transmission Date: 20140414
  Serious: Yes (Hospitalization)
  Sender: FDA-Public Use
  Company Number: DK-PFIZER INC-2011306130

PATIENT
  Age: 22 Year
  Sex: Female
  Weight: 60 kg

DRUGS (3)
  1. PROVERA [Suspect]
     Indication: ENDOMETRIOSIS
     Dosage: 5 MG, 3X/DAY
     Route: 048
     Dates: start: 20110926, end: 20111026
  2. IBUPROFEN [Concomitant]
     Dosage: UNK
  3. PAMOL [Concomitant]
     Dosage: UNK

REACTIONS (2)
  - Thrombosis [Not Recovered/Not Resolved]
  - Pelvic venous thrombosis [Not Recovered/Not Resolved]
